FAERS Safety Report 14082013 (Version 1)
Quarter: 2017Q4

REPORT INFORMATION
  Report Type: Spontaneous
  Country: US (occurrence: US)
  Receive Date: 20171012
  Receipt Date: 20171012
  Transmission Date: 20180321
  Serious: No
  Sender: FDA-Public Use
  Company Number: US-MYLANLABS-2017M1048344

PATIENT
  Age: 71 Year
  Sex: Female
  Weight: 81.63 kg

DRUGS (1)
  1. ZOLPIDEM TARTRATE TABLETS, USP [Suspect]
     Active Substance: ZOLPIDEM TARTRATE
     Indication: INSOMNIA
     Dosage: 10 MG, UNK
     Route: 048
     Dates: start: 201701, end: 201701

REACTIONS (3)
  - Sleep disorder [Recovered/Resolved]
  - Fatigue [Recovered/Resolved]
  - Nightmare [Recovered/Resolved]

NARRATIVE: CASE EVENT DATE: 201701
